FAERS Safety Report 14991901 (Version 2)
Quarter: 2018Q3

REPORT INFORMATION
  Report Type: Spontaneous
  Country: JP (occurrence: JP)
  Receive Date: 20180608
  Receipt Date: 20180710
  Transmission Date: 20181010
  Serious: Yes (Other)
  Sender: FDA-Public Use
  Company Number: PHJP2018JP012140

PATIENT
  Age: 51 Year

DRUGS (2)
  1. TASIGNA [Suspect]
     Active Substance: NILOTINIB
     Indication: CHRONIC MYELOID LEUKAEMIA
     Dosage: 600 MG, QD
     Route: 065
     Dates: start: 201109
  2. IMATINIB [Suspect]
     Active Substance: IMATINIB
     Indication: CHRONIC MYELOID LEUKAEMIA
     Dosage: 400 MG, UNK
     Route: 065
     Dates: start: 201109

REACTIONS (8)
  - Transient ischaemic attack [Unknown]
  - Remission not achieved [Unknown]
  - Cerebral artery stenosis [Unknown]
  - Dyskinesia [Unknown]
  - Cerebrovascular stenosis [Unknown]
  - Carotid artery stenosis [Unknown]
  - Vascular stenosis [Unknown]
  - Peripheral artery stenosis [Unknown]

NARRATIVE: CASE EVENT DATE: 201306
